FAERS Safety Report 11116851 (Version 14)
Quarter: 2019Q1

REPORT INFORMATION
  Report Type: Report from Study
  Country: US (occurrence: US)
  Receive Date: 20150515
  Receipt Date: 20190103
  Transmission Date: 20190417
  Serious: Yes (Hospitalization)
  Sender: FDA-Public Use
  Company Number: US-ACTELION-A-NJ2015-117842

PATIENT
  Age: 72 Year
  Sex: Female
  Weight: 87.53 kg

DRUGS (6)
  1. VITAMIN B12 [Concomitant]
     Active Substance: CYANOCOBALAMIN
  2. OXYGEN. [Concomitant]
     Active Substance: OXYGEN
  3. LEVEMIR [Concomitant]
     Active Substance: INSULIN DETEMIR
  4. TRACLEER [Suspect]
     Active Substance: BOSENTAN
     Dosage: 62.5 MG, BID
     Route: 048
  5. AMLODIPINE [Concomitant]
     Active Substance: AMLODIPINE BESYLATE
  6. TRACLEER [Suspect]
     Active Substance: BOSENTAN
     Indication: PULMONARY ARTERIAL HYPERTENSION
     Dosage: 125 MG, BID
     Route: 048

REACTIONS (33)
  - Abdominal distension [Unknown]
  - Pulmonary oedema [Unknown]
  - Renal disorder [Unknown]
  - Anaemia [Unknown]
  - Hypoaesthesia [Unknown]
  - Sleep apnoea syndrome [Unknown]
  - Muscle spasms [Unknown]
  - Renal failure [Unknown]
  - Pain in extremity [Unknown]
  - Peripheral swelling [Unknown]
  - Constipation [Unknown]
  - Cardiac pacemaker insertion [Unknown]
  - Fungal infection [Unknown]
  - Swelling [Unknown]
  - Faeces discoloured [Unknown]
  - Sleep disorder [Unknown]
  - Vascular operation [Unknown]
  - Tremor [Unknown]
  - Neck injury [Unknown]
  - Dizziness [Unknown]
  - Dehydration [Unknown]
  - Lung disorder [Unknown]
  - Fluid retention [Unknown]
  - Asthenia [Unknown]
  - Blood glucose decreased [Unknown]
  - Road traffic accident [Unknown]
  - Neuropathy peripheral [Unknown]
  - Fluid overload [Unknown]
  - Pruritus generalised [Unknown]
  - Vasoconstriction [Unknown]
  - Oedema [Unknown]
  - Gastrointestinal disorder [Unknown]
  - Oxygen therapy [Unknown]

NARRATIVE: CASE EVENT DATE: 201710
